FAERS Safety Report 8686907 (Version 2)
Quarter: 2012Q4

REPORT INFORMATION
  Report Type: 
  Country: DE (occurrence: DE)
  Receive Date: 20120727
  Receipt Date: 20120830
  Transmission Date: 20130627
  Serious: Yes (Hospitalization, Other)
  Sender: FDA-Public Use
  Company Number: DE-JNJFOC-20120710403

PATIENT
  Age: 55 Year
  Sex: Female
  Weight: 64 kg

DRUGS (3)
  1. PALIPERIDONE PALMITATE [Suspect]
     Indication: PSYCHOTIC DISORDER
     Dosage: for 3 months
     Route: 030
     Dates: start: 20120301
  2. AGOMELATINE [Concomitant]
     Indication: SLEEP DISORDER
     Route: 048
  3. AGOMELATINE [Concomitant]
     Indication: DEPRESSION
     Route: 048

REACTIONS (1)
  - Thrombosis [Not Recovered/Not Resolved]
